FAERS Safety Report 17611530 (Version 1)
Quarter: 2020Q2

REPORT INFORMATION
  Report Type: Report from Study
  Country: US (occurrence: US)
  Receive Date: 20200401
  Receipt Date: 20200401
  Transmission Date: 20200713
  Serious: No
  Sender: FDA-Public Use
  Company Number: US-RETROPHIN, INC.-2019RTN00110

PATIENT
  Age: 48 Year
  Sex: Female

DRUGS (2)
  1. CHOLBAM [Suspect]
     Active Substance: CHOLIC ACID
     Indication: ENZYME ABNORMALITY
     Dosage: 100 MG, 2X/DAY
     Dates: start: 20190921
  2. CHOLBAM [Suspect]
     Active Substance: CHOLIC ACID
     Indication: ENZYME ABNORMALITY
     Dosage: 250 MG, 2X/DAY
     Dates: start: 201909

REACTIONS (5)
  - Confusional state [Recovered/Resolved]
  - Nasopharyngitis [Recovered/Resolved]
  - Nasal congestion [Recovered/Resolved]
  - Disorientation [Recovered/Resolved]
  - Eye disorder [Recovering/Resolving]

NARRATIVE: CASE EVENT DATE: 2019
